FAERS Safety Report 23427827 (Version 1)
Quarter: 2024Q1

REPORT INFORMATION
  Report Type: Spontaneous
  Country: CA (occurrence: CA)
  Receive Date: 20240122
  Receipt Date: 20240122
  Transmission Date: 20240410
  Serious: Yes (Other)
  Sender: FDA-Public Use
  Company Number: CA-EPICPHARMA-CA-2024EPCLIT00073

PATIENT
  Age: 51 Year
  Sex: Male

DRUGS (4)
  1. CEFTRIAXONE SODIUM [Suspect]
     Active Substance: CEFTRIAXONE SODIUM
     Indication: Whipple^s disease
     Route: 042
     Dates: start: 2014
  2. CEFTRIAXONE SODIUM [Suspect]
     Active Substance: CEFTRIAXONE SODIUM
     Dosage: FOR 3 MONTHS
     Route: 042
  3. PREDNISONE [Suspect]
     Active Substance: PREDNISONE
     Indication: Polymyalgia rheumatica
     Route: 065
  4. COTRIMOXAZOLE [Suspect]
     Active Substance: SULFAMETHOXAZOLE\TRIMETHOPRIM
     Indication: Product used for unknown indication
     Route: 065

REACTIONS (2)
  - Immune reconstitution inflammatory syndrome [Not Recovered/Not Resolved]
  - Product use in unapproved indication [Unknown]
